FAERS Safety Report 8304172-8 (Version None)
Quarter: 2012Q2

REPORT INFORMATION
  Report Type: 
  Country: None (occurrence: None)
  Receive Date: 20120423
  Receipt Date: 20120409
  Transmission Date: 20120825
  Serious: No
  Sender: FDA-Public Use
  Company Number: US-JNJFOC-20120404034

PATIENT
  Sex: Male
  Weight: 131.54 kg

DRUGS (3)
  1. CIMETIDINE [Concomitant]
     Indication: GASTRIC DISORDER
     Route: 048
  2. CYMBALTA [Concomitant]
     Dosage: 60MG AM AND 60 MG IN PM
     Route: 048
     Dates: start: 20070101
  3. DURAGESIC-100 [Suspect]
     Indication: NEUROPATHY PERIPHERAL
     Route: 062
     Dates: start: 20120201

REACTIONS (4)
  - PRODUCT QUALITY ISSUE [None]
  - DRUG DOSE OMISSION [None]
  - WRONG TECHNIQUE IN DRUG USAGE PROCESS [None]
  - PRODUCT ADHESION ISSUE [None]
